FAERS Safety Report 25214444 (Version 1)
Quarter: 2025Q2

REPORT INFORMATION
  Report Type: Spontaneous
  Country: US (occurrence: US)
  Receive Date: 20250418
  Receipt Date: 20250418
  Transmission Date: 20250716
  Serious: Yes (Other)
  Sender: PFIZER
  Company Number: US-PFIZER INC-PV202500027356

PATIENT
  Age: 37 Year
  Sex: Female
  Weight: 54.15 kg

DRUGS (4)
  1. XELJANZ XR [Suspect]
     Active Substance: TOFACITINIB CITRATE
     Indication: Rheumatoid arthritis
     Dosage: 11 MG, ONCE DAILY
     Route: 048
     Dates: start: 2020, end: 202307
  2. PREDNISONE [Concomitant]
     Active Substance: PREDNISONE
     Dosage: TAKE ONE TABLET BY MOUTH EVERY DAY
     Route: 048
  3. UBRELVY [Concomitant]
     Active Substance: UBROGEPANT
     Route: 048
  4. TRI MILI [Concomitant]
     Dosage: 1 DF, 1X/DAY (28) 0.18 MG(7)/0.215 MG(7)/0.25 MG(7)-35 MCG TABLET
     Route: 048

REACTIONS (6)
  - Joint arthroplasty [Unknown]
  - Lip operation [Unknown]
  - Hypothyroidism [Unknown]
  - Condition aggravated [Unknown]
  - Maternal exposure timing unspecified [Unknown]
  - Asthma [Unknown]

NARRATIVE: CASE EVENT DATE: 20230101
